FAERS Safety Report 4526542-6 (Version None)
Quarter: 2004Q4

REPORT INFORMATION
  Report Type: 
  Country: None (occurrence: None)
  Receive Date: 20041210
  Receipt Date: 20041115
  Transmission Date: 20050328
  Serious: Yes (Hospitalization)
  Sender: FDA-Public Use
  Company Number: 2004094057

PATIENT
  Sex: Female

DRUGS (2)
  1. BEXTRA [Suspect]
     Indication: POST PROCEDURAL PAIN
     Dosage: 10 MG(10 MG, 1 IN 1), ORAL
     Route: 048
     Dates: start: 20041112
  2. METRONIDAZOLE [Concomitant]

REACTIONS (1)
  - ANAPHYLACTIC REACTION [None]
